FAERS Safety Report 23118321 (Version 1)
Quarter: 2023Q4

REPORT INFORMATION
  Report Type: Spontaneous
  Country: US (occurrence: US)
  Receive Date: 20231028
  Receipt Date: 20231028
  Transmission Date: 20240109
  Serious: Yes (Other)
  Sender: FDA-Public Use
  Company Number: US-ABBVIE-5462522

PATIENT
  Age: 80 Year
  Sex: Male
  Weight: 71 kg

DRUGS (4)
  1. RESTASIS [Suspect]
     Active Substance: CYCLOSPORINE
     Indication: Dry eye
     Dosage: 1 DROP EACH EYE TWICE A DAY
     Route: 047
     Dates: start: 2021
  2. RESTASIS [Suspect]
     Active Substance: CYCLOSPORINE
     Dosage: 1 DROP EACH EYE TWICE A DAY
     Route: 047
  3. REFRESH CELLUVISC [Suspect]
     Active Substance: CARBOXYMETHYLCELLULOSE SODIUM
     Indication: Eye irritation
     Dosage: FREQUENCY TEXT: 1 DROP EACH EYE EVERY 2 HRS WHEN AWAKE
     Route: 047
     Dates: start: 20230926
  4. REFRESH CELLUVISC [Suspect]
     Active Substance: CARBOXYMETHYLCELLULOSE SODIUM
     Indication: Eye irritation
     Dosage: FREQUENCY TEXT: 1 DROP EACH EYE EVERY 2 HRS WHEN AWAKE
     Route: 047

REACTIONS (3)
  - Cataract operation complication [Not Recovered/Not Resolved]
  - Eye inflammation [Recovered/Resolved]
  - Eye swelling [Not Recovered/Not Resolved]

NARRATIVE: CASE EVENT DATE: 20230901
